FAERS Safety Report 25835516 (Version 1)
Quarter: 2025Q3

REPORT INFORMATION
  Report Type: Spontaneous
  Country: EU (occurrence: EU)
  Receive Date: 20250923
  Receipt Date: 20250923
  Transmission Date: 20251021
  Serious: Yes (Other)
  Sender: ROCHE
  Company Number: EU-002147023-NVSC2025DE147212

PATIENT
  Sex: Female

DRUGS (4)
  1. LUCENTIS [Suspect]
     Active Substance: RANIBIZUMAB
     Indication: Neovascular age-related macular degeneration
     Dosage: UNK, Q3MO
     Route: 050
     Dates: end: 202410
  2. LUCENTIS [Suspect]
     Active Substance: RANIBIZUMAB
     Dosage: UNK, QMO
     Route: 050
     Dates: start: 202505
  3. LUCENTIS [Suspect]
     Active Substance: RANIBIZUMAB
     Route: 065
     Dates: start: 202506
  4. LUCENTIS [Suspect]
     Active Substance: RANIBIZUMAB
     Route: 065
     Dates: start: 202507

REACTIONS (2)
  - Macular oedema [Not Recovered/Not Resolved]
  - Visual acuity reduced [Not Recovered/Not Resolved]
